FAERS Safety Report 14017419 (Version 5)
Quarter: 2017Q4

REPORT INFORMATION
  Report Type: Spontaneous
  Country: US (occurrence: US)
  Receive Date: 20170927
  Receipt Date: 20171128
  Transmission Date: 20180321
  Serious: No
  Sender: FDA-Public Use
  Company Number: US-GLAXOSMITHKLINE-US2017GSK148723

PATIENT
  Age: 82 Year
  Sex: Female

DRUGS (5)
  1. PREVACID [Suspect]
     Active Substance: LANSOPRAZOLE
     Indication: PRODUCT USED FOR UNKNOWN INDICATION
  2. ALBUTEROL NEBULIZER [Concomitant]
     Active Substance: ALBUTEROL
  3. AZITHROMYCIN ANHYDROUS. [Suspect]
     Active Substance: AZITHROMYCIN ANHYDROUS
     Indication: PRODUCT USED FOR UNKNOWN INDICATION
     Dosage: UNK
     Dates: start: 201709
  4. PREDNISONE. [Concomitant]
     Active Substance: PREDNISONE
  5. VENTOLIN HFA [Suspect]
     Active Substance: ALBUTEROL SULFATE
     Indication: EMPHYSEMA
     Dosage: 2 PUFF(S), 6D
     Route: 055
     Dates: start: 201709

REACTIONS (27)
  - Stomatitis [Not Recovered/Not Resolved]
  - Tongue biting [Not Recovered/Not Resolved]
  - Hypersensitivity [Unknown]
  - Purpura [Unknown]
  - Tongue erythema [Recovered/Resolved]
  - White blood cell count increased [Unknown]
  - Erythema [Unknown]
  - Tongue discolouration [Recovered/Resolved]
  - Swollen tongue [Not Recovered/Not Resolved]
  - Rash [Not Recovered/Not Resolved]
  - Bronchospasm [Unknown]
  - Rash pruritic [Not Recovered/Not Resolved]
  - Productive cough [Not Recovered/Not Resolved]
  - Tongue disorder [Not Recovered/Not Resolved]
  - Tongue eruption [Not Recovered/Not Resolved]
  - Glossodynia [Unknown]
  - Speech disorder [Not Recovered/Not Resolved]
  - Chapped lips [Recovered/Resolved]
  - Insomnia [Unknown]
  - Back pain [Unknown]
  - Hypotension [Not Recovered/Not Resolved]
  - Feeding disorder [Unknown]
  - Product use in unapproved indication [Unknown]
  - Urticaria [Not Recovered/Not Resolved]
  - Pruritus generalised [Not Recovered/Not Resolved]
  - Malaise [Unknown]
  - Cough [Not Recovered/Not Resolved]

NARRATIVE: CASE EVENT DATE: 201709
